FAERS Safety Report 7099034-0 (Version None)
Quarter: 2010Q4

REPORT INFORMATION
  Report Type: 
  Country: None (occurrence: None)
  Receive Date: 20101112
  Receipt Date: 20101031
  Transmission Date: 20110411
  Serious: Yes (Hospitalization, Other)
  Sender: FDA-Public Use
  Company Number: PHHY2010KR73285

PATIENT
  Age: 68 Year
  Sex: Male

DRUGS (2)
  1. ZOMETA [Suspect]
     Indication: MULTIPLE MYELOMA
  2. VELCADE [Concomitant]
     Indication: MULTIPLE MYELOMA

REACTIONS (5)
  - METASTASES TO BONE [None]
  - OSTEONECROSIS OF JAW [None]
  - SURGERY [None]
  - TOOTH DISORDER [None]
  - TOOTH EXTRACTION [None]
